FAERS Safety Report 7200062-2 (Version None)
Quarter: 2010Q4

REPORT INFORMATION
  Report Type: 
  Country: None (occurrence: None)
  Receive Date: 20101215
  Receipt Date: 20101201
  Transmission Date: 20110411
  Serious: Yes (Hospitalization, Other)
  Sender: FDA-Public Use
  Company Number: ACO_20731_2010

PATIENT
  Age: 63 Year
  Sex: Female

DRUGS (14)
  1. AMPYRA [Suspect]
     Indication: PRODUCT USED FOR UNKNOWN INDICATION
     Dosage: 10 MG, BID
     Dates: start: 20100430, end: 20101025
  2. ASPIRIN [Concomitant]
  3. BENICAR [Concomitant]
  4. BACLOFEN [Concomitant]
  5. LEXAPRO [Concomitant]
  6. VYTORIN [Concomitant]
  7. SINGULAIR [Concomitant]
  8. OXYBUTYNIN CHLORIDE [Concomitant]
  9. ACTOMEL [Concomitant]
  10. PERI-COLACE [Concomitant]
  11. CRANBERRY (VACCINIUM MACROCARPON) [Concomitant]
  12. METAMUCIL (PLANTAGO OVATA) [Concomitant]
  13. SENNA (SENNA ALEXANDRINA) [Concomitant]
  14. QVIT [Concomitant]

REACTIONS (2)
  - ANXIETY [None]
  - DELUSION [None]
